FAERS Safety Report 5839498-0 (Version None)
Quarter: 2008Q3

REPORT INFORMATION
  Report Type: 
  Country: None (occurrence: None)
  Receive Date: 20080807
  Receipt Date: 20080731
  Transmission Date: 20090109
  Serious: Yes (Disabling, Other)
  Sender: FDA-Public Use
  Company Number: SPV1-2008-01615

PATIENT
  Sex: Male
  Weight: 58.4 kg

DRUGS (4)
  1. ANAGRELIDE HYDROCHLORIDE [Suspect]
     Dates: end: 20080101
  2. ARANESP [Suspect]
     Indication: RENAL FAILURE CHRONIC
     Dosage: 100 UG, INTRAVENOUS
     Route: 042
     Dates: start: 20070501, end: 20080501
  3. NEORECORMON(EPOETIN BETA) UNKNOWN [Suspect]
     Indication: RENAL FAILURE CHRONIC
     Dosage: 10000 IU
     Dates: start: 20080501, end: 20080703
  4. EPREX [Suspect]
     Indication: RENAL FAILURE CHRONIC
     Dosage: 10000 IU
     Dates: start: 20080703

REACTIONS (4)
  - DRUG INEFFECTIVE [None]
  - ESSENTIAL THROMBOCYTHAEMIA [None]
  - FIBROSIS [None]
  - HAEMATOCRIT DECREASED [None]
